FAERS Safety Report 5943453-X (Version None)
Quarter: 2008Q4

REPORT INFORMATION
  Report Type: 
  Country: None (occurrence: None)
  Receive Date: 20081105
  Receipt Date: 20081105
  Transmission Date: 20090506
  Serious: Yes (Hospitalization)
  Sender: FDA-Public Use
  Company Number: None

PATIENT
  Age: 37 Year
  Sex: Female
  Weight: 90.7194 kg

DRUGS (2)
  1. PROPYLTHIOURACIL [Suspect]
     Indication: BASEDOW'S DISEASE
     Dosage: 50 MG 2 X EACH DAY PO
     Route: 048
     Dates: start: 20060822, end: 20081101
  2. PROPYLTHIOURACIL [Suspect]
     Indication: HYPERTHYROIDISM
     Dosage: 50 MG 2 X EACH DAY PO
     Route: 048
     Dates: start: 20060822, end: 20081101

REACTIONS (8)
  - CHILLS [None]
  - IMPAIRED HEALING [None]
  - NAUSEA [None]
  - PAIN [None]
  - PYREXIA [None]
  - SKIN LESION [None]
  - STAPHYLOCOCCAL SKIN INFECTION [None]
  - WHITE BLOOD CELL COUNT DECREASED [None]
